FAERS Safety Report 20584074 (Version 1)
Quarter: 2022Q1

REPORT INFORMATION
  Report Type: Spontaneous
  Country: NL (occurrence: None)
  Receive Date: 20220311
  Receipt Date: 20220311
  Transmission Date: 20220423
  Serious: Yes (Other)
  Sender: FDA-Public Use
  Company Number: 2022A099287

PATIENT
  Age: 81 Year
  Sex: Female

DRUGS (13)
  1. LYNPARZA [Suspect]
     Active Substance: OLAPARIB
     Indication: Ovarian cancer
     Dosage: 2DD300MG
     Route: 048
     Dates: start: 202101
  2. LISINOPRIL [Concomitant]
     Active Substance: LISINOPRIL
  3. SIMVASTATIN [Concomitant]
     Active Substance: SIMVASTATIN
  4. ALENDRONIC ACID [Concomitant]
     Active Substance: ALENDRONIC ACID
  5. OMEPRAZOLE [Concomitant]
     Active Substance: OMEPRAZOLE
  6. SALMETEROL [Concomitant]
     Active Substance: SALMETEROL
     Dosage: 50UG/DO / SEREVENT DISC INHPDR 50MCG 60DO
  7. NEPAFENAC [Concomitant]
     Active Substance: NEPAFENAC
     Dosage: IF NECESSARY
  8. ALBUTEROL [Concomitant]
     Active Substance: ALBUTEROL
     Dosage: 200UG/DO
  9. ZOPICLONE [Concomitant]
     Active Substance: ZOPICLONE
  10. CALCIUMCARB [Concomitant]
     Dosage: 1.25G/800IU (500MG CA)
  11. CITALOPRAM [Concomitant]
     Active Substance: CITALOPRAM HYDROBROMIDE
     Dosage: 3DD 600MG
  12. ACETAMINOPHEN [Concomitant]
     Active Substance: ACETAMINOPHEN
  13. VITAMIN A PALMITATE [Concomitant]
     Active Substance: VITAMIN A PALMITATE

REACTIONS (4)
  - Acute leukaemia [Unknown]
  - Thrombocytopenia [Unknown]
  - Reticulocyte count decreased [Unknown]
  - Anaemia [Unknown]
